FAERS Safety Report 5236041-4 (Version None)
Quarter: 2007Q1

REPORT INFORMATION
  Report Type: 
  Country: None (occurrence: None)
  Receive Date: 20070212
  Receipt Date: 20070130
  Transmission Date: 20070707
  Serious: Yes (Hospitalization)
  Sender: FDA-Public Use
  Company Number: FR-ELI_LILLY_AND_COMPANY-FR200701006228

PATIENT
  Age: 72 Year
  Sex: Female

DRUGS (4)
  1. FORTEO [Suspect]
     Indication: OSTEOPOROSIS
     Dosage: 20 UG, DAILY (1/D)
     Route: 058
     Dates: start: 20060916
  2. CORTANCYL [Concomitant]
     Indication: MULTIPLE SCLEROSIS
  3. IMUREL [Concomitant]
     Indication: MULTIPLE SCLEROSIS
  4. SKENAN [Concomitant]
     Indication: PAIN

REACTIONS (3)
  - FATIGUE [None]
  - PAIN [None]
  - SOMNOLENCE [None]
